FAERS Safety Report 7787237-9 (Version None)
Quarter: 2011Q3

REPORT INFORMATION
  Report Type: 
  Country: None (occurrence: None)
  Receive Date: 20110929
  Receipt Date: 20110920
  Transmission Date: 20111222
  Serious: Yes (Death, Hospitalization)
  Sender: FDA-Public Use
  Company Number: JP-ACTELION-A-CH2011-51076

PATIENT
  Sex: Male
  Weight: 68 kg

DRUGS (5)
  1. BERAPROST SODIUM [Concomitant]
  2. CYTARABINE [Suspect]
     Dosage: UNK
     Dates: start: 20100401, end: 20100406
  3. SILDENAFIL CITRATE [Concomitant]
  4. OXYGEN [Concomitant]
  5. TRACLEER [Suspect]
     Indication: PULMONARY ARTERIAL HYPERTENSION
     Dosage: 62.5 MG, BID
     Route: 048
     Dates: start: 20100401, end: 20100429

REACTIONS (18)
  - PNEUMONIA [None]
  - HAEMOGLOBIN DECREASED [None]
  - N-TERMINAL PROHORMONE BRAIN NATRIURETIC PEPTIDE [None]
  - RESPIRATORY FAILURE [None]
  - BRAIN NATRIURETIC PEPTIDE INCREASED [None]
  - CARDIAC FAILURE [None]
  - MECHANICAL VENTILATION [None]
  - ASPARTATE AMINOTRANSFERASE INCREASED [None]
  - ALANINE AMINOTRANSFERASE INCREASED [None]
  - WHITE BLOOD CELL COUNT DECREASED [None]
  - PLATELET COUNT DECREASED [None]
  - BLOOD PRESSURE DECREASED [None]
  - TRANSFUSION [None]
  - PLATELET TRANSFUSION [None]
  - BLOOD BILIRUBIN INCREASED [None]
  - LIVER FUNCTION TEST ABNORMAL [None]
  - RED BLOOD CELL COUNT DECREASED [None]
  - HAEMATOCRIT DECREASED [None]
